FAERS Safety Report 25575637 (Version 1)
Quarter: 2025Q3

REPORT INFORMATION
  Report Type: Other
  Country: EU (occurrence: EU)
  Receive Date: 20250718
  Receipt Date: 20250718
  Transmission Date: 20251020
  Serious: Yes (Hospitalization, Congenital Anomaly, Other)
  Sender: ANI
  Company Number: EU-ANIPHARMA-023625

PATIENT

DRUGS (1)
  1. INDOMETHACIN [Suspect]
     Active Substance: INDOMETHACIN
     Indication: Product used for unknown indication
     Route: 064

REACTIONS (4)
  - Foetal exposure during pregnancy [Unknown]
  - Ductus arteriosus stenosis foetal [Recovered/Resolved]
  - Ductus arteriosus premature closure [Recovered/Resolved]
  - Persistent foetal circulation [Recovered/Resolved]
